FAERS Safety Report 6010133-4 (Version None)
Quarter: 2008Q4

REPORT INFORMATION
  Report Type: 
  Country: None (occurrence: None)
  Receive Date: 20081217
  Receipt Date: 20081217
  Transmission Date: 20090506
  Serious: Yes (Disabling)
  Sender: FDA-Public Use
  Company Number: None

PATIENT
  Sex: Male
  Weight: 90.7194 kg

DRUGS (1)
  1. LEVAQUIN [Suspect]
     Indication: PYREXIA
     Dosage: 750MG ONCE DAILY MOUTH 047
     Route: 048
     Dates: start: 20081116, end: 20081121

REACTIONS (7)
  - ARTHRALGIA [None]
  - BONE PAIN [None]
  - DYSSTASIA [None]
  - GAIT DISTURBANCE [None]
  - JOINT SWELLING [None]
  - PAIN [None]
  - PAIN IN EXTREMITY [None]
